FAERS Safety Report 10169790 (Version 1)
Quarter: 2014Q2

REPORT INFORMATION
  Report Type: Spontaneous
  Country: US (occurrence: US)
  Receive Date: 20140513
  Receipt Date: 20140513
  Transmission Date: 20141212
  Serious: Yes (Other)
  Sender: FDA-Public Use
  Company Number: US-B.I. PHARMACEUTICALS,INC./RIDGEFIELD-2014-BI-20823BP

PATIENT
  Sex: Male

DRUGS (9)
  1. SPIRIVA [Suspect]
     Indication: EMPHYSEMA
     Dosage: 18 MCG
     Route: 055
  2. ADVAIR [Concomitant]
     Indication: EMPHYSEMA
     Dosage: DOSE PER APPLICATION AND DAILY DOSE: 500/50 MG
     Route: 055
  3. ADVAIR HFA [Concomitant]
     Indication: EMPHYSEMA
     Dosage: FORMULATION: INHALATION SOLUTION; DOSE PER APPLICATION AND DAILY DOSE: 45/21
     Route: 045
  4. POTASSIUM [Concomitant]
     Indication: BLOOD POTASSIUM DECREASED
     Dosage: 20 MEQ
     Route: 048
  5. CLONAZEPAM [Concomitant]
     Indication: RESTLESS LEGS SYNDROME
     Dosage: 1 MG
     Route: 048
  6. LASIX [Concomitant]
     Indication: FLUID RETENTION
     Dosage: 40 MG
     Route: 048
  7. ASPIRIN [Concomitant]
     Dosage: 325 MG
     Route: 048
  8. MOBIC [Concomitant]
     Indication: ARTHRITIS
     Dosage: 7.5 MG
     Route: 048
  9. MIRAPEX [Concomitant]
     Indication: RESTLESS LEGS SYNDROME
     Dosage: 1 MG
     Route: 048

REACTIONS (1)
  - Deafness unilateral [Not Recovered/Not Resolved]
